FAERS Safety Report 8429788-X (Version None)
Quarter: 2012Q2

REPORT INFORMATION
  Report Type: 
  Country: None (occurrence: None)
  Receive Date: 20120518
  Receipt Date: 20120504
  Transmission Date: 20120825
  Serious: Yes (Hospitalization, Other)
  Sender: FDA-Public Use
  Company Number: P0575

PATIENT
  Age: 83 Year
  Sex: Male

DRUGS (20)
  1. CALCIUM CITRATE (CALCIUM CITRATE) [Concomitant]
  2. CHOLECALCIFEROL + VITAMIN D (COLECALCIFEROL) [Concomitant]
  3. OXYCODONE HCL [Concomitant]
  4. ACETYLSALICYLIC ACID (ACETLSALICYLIC ACID0 [Concomitant]
  5. ZOLEDRONIC ACID [Concomitant]
  6. SIPULEUCEL-T (SIPULEUCEL-T) (INFUSION) [Suspect]
     Indication: PROSTATE CANCER METASTATIC
     Dosage: INTRAVENOUS
     Route: 042
     Dates: start: 20120420, end: 20120420
  7. METFFORMIN HYDROCHLORIDE [Concomitant]
  8. AMLODIPINE [Concomitant]
  9. FUROSEMIDE [Concomitant]
  10. MULTIVITAMNS (ERGOCALCIFEROL, ASCORBIC ACID, FOLIC ACID, THIAMINE HYDR [Concomitant]
  11. OMEPRAZOLE [Concomitant]
  12. DIPHENHYDRAMINE HCL [Concomitant]
  13. ALBUTEROL [Concomitant]
  14. ACETAMINOPEHN (PARACETAMOL) [Concomitant]
  15. NITROGLYCERIN (GLYCERYL TRINTRATE) [Concomitant]
  16. LEUPROLIDE ACETATE [Concomitant]
  17. ASCORBIC ACID [Concomitant]
  18. LISINOPRIL [Concomitant]
  19. ROSUVASTATIN [Concomitant]
  20. FISH OIL (FISH OIL) [Concomitant]

REACTIONS (14)
  - PEPTIC ULCER [None]
  - GASTROINTESTINAL HAEMORRHAGE [None]
  - ANAEMIA [None]
  - HYPOTENSION [None]
  - HYPERTENSION [None]
  - DIABETES MELLITUS [None]
  - FATIGUE [None]
  - FAECES DISCOLOURED [None]
  - ATRIAL FIBRILLATION [None]
  - DECREASED APPETITE [None]
  - HAEMATURIA [None]
  - THROMBOCYTOPENIA [None]
  - FEELING ABNORMAL [None]
  - ASTHENIA [None]
